FAERS Safety Report 16211595 (Version 1)
Quarter: 2019Q2

REPORT INFORMATION
  Report Type: Spontaneous
  Country: ES (occurrence: ES)
  Receive Date: 20190418
  Receipt Date: 20190418
  Transmission Date: 20190711
  Serious: Yes (Other)
  Sender: FDA-Public Use
  Company Number: ES-ALKEM LABORATORIES LIMITED-ES-ALKEM-2019-01539

PATIENT
  Sex: Male
  Weight: 81.7 kg

DRUGS (5)
  1. EZETIMIBE. [Suspect]
     Active Substance: EZETIMIBE
     Indication: GLYCOGEN STORAGE DISEASE TYPE V
     Dosage: 10 MILLIGRAM, QD
     Route: 065
  2. FENOFIBRATE. [Suspect]
     Active Substance: FENOFIBRATE
     Indication: GLYCOGEN STORAGE DISEASE TYPE V
     Dosage: 145 MILLIGRAM, QD
     Route: 065
  3. COLESTIPOL [Suspect]
     Active Substance: COLESTIPOL
     Dosage: 10 GRAM, QD
     Route: 065
  4. ATORVASTATIN CALCIUM. [Suspect]
     Active Substance: ATORVASTATIN CALCIUM
     Indication: PRODUCT USED FOR UNKNOWN INDICATION
     Dosage: 20 MILLIGRAM, QD
     Route: 065
  5. COLESTIPOL [Suspect]
     Active Substance: COLESTIPOL
     Indication: GLYCOGEN STORAGE DISEASE TYPE V
     Dosage: 5 GRAM, QD
     Route: 065

REACTIONS (2)
  - Drug ineffective [Unknown]
  - Rhabdomyolysis [Unknown]
